FAERS Safety Report 16594027 (Version 1)
Quarter: 2019Q3

REPORT INFORMATION
  Report Type: Spontaneous
  Country: CA (occurrence: CA)
  Receive Date: 20190718
  Receipt Date: 20190718
  Transmission Date: 20191004
  Serious: Yes (Hospitalization, Other)
  Sender: FDA-Public Use
  Company Number: CA-TEVA-2019-CA-1078762

PATIENT
  Age: 60 Year
  Sex: Male
  Weight: 48 kg

DRUGS (4)
  1. ATORVASTATIN [Suspect]
     Active Substance: ATORVASTATIN
     Indication: CORONARY ARTERY DISEASE
     Dosage: 80 MILLIGRAM DAILY;
     Route: 048
  2. ASA [Concomitant]
     Active Substance: ASPIRIN
  3. COVERSYL /FRA/ [Concomitant]
     Active Substance: PERINDOPRIL
  4. AZITHROMYCIN ANHYDROUS. [Concomitant]
     Active Substance: AZITHROMYCIN ANHYDROUS

REACTIONS (10)
  - Blood creatine phosphokinase increased [Recovering/Resolving]
  - Pulmonary embolism [Recovering/Resolving]
  - Muscular weakness [Recovering/Resolving]
  - Hepatitis B core antibody positive [Recovering/Resolving]
  - Hepatitis acute [Recovering/Resolving]
  - Muscle spasms [Recovering/Resolving]
  - Alanine aminotransferase increased [Recovering/Resolving]
  - Rhabdomyolysis [Recovering/Resolving]
  - Infection [Recovering/Resolving]
  - Aspartate aminotransferase increased [Recovering/Resolving]
